FAERS Safety Report 14295162 (Version 1)
Quarter: 2017Q4

REPORT INFORMATION
  Report Type: Spontaneous
  Country: US (occurrence: US)
  Receive Date: 20171215
  Receipt Date: 20171215
  Transmission Date: 20180321
  Serious: Yes (Hospitalization)
  Sender: FDA-Public Use
  Company Number: None

PATIENT
  Age: 54 Year
  Sex: Female

DRUGS (13)
  1. LISINOPRIL. [Concomitant]
     Active Substance: LISINOPRIL
  2. PROPRANOLOL [Concomitant]
     Active Substance: PROPRANOLOL HYDROCHLORIDE
  3. METFORMIN [Concomitant]
     Active Substance: METFORMIN HYDROCHLORIDE
  4. FLUTICASONE. [Concomitant]
     Active Substance: FLUTICASONE
  5. LAMOTRIGINE. [Concomitant]
     Active Substance: LAMOTRIGINE
  6. BYDUREON [Concomitant]
     Active Substance: EXENATIDE
  7. FLUOXETINE [Concomitant]
     Active Substance: FLUOXETINE HYDROCHLORIDE
  8. ASPIRIN. [Concomitant]
     Active Substance: ASPIRIN
  9. ROSUVASTATIN. [Concomitant]
     Active Substance: ROSUVASTATIN
  10. TRAMADOL. [Concomitant]
     Active Substance: TRAMADOL
  11. ACTEMRA [Suspect]
     Active Substance: TOCILIZUMAB
     Indication: RHEUMATOID ARTHRITIS
     Dosage: 162/0.9 ML, QWK, SC
     Route: 058
     Dates: start: 20170829
  12. FLECTOR [Concomitant]
     Active Substance: DICLOFENAC EPOLAMINE
  13. OMEPRAZOLE. [Suspect]
     Active Substance: OMEPRAZOLE

REACTIONS (1)
  - Knee operation [None]

NARRATIVE: CASE EVENT DATE: 20171122
